FAERS Safety Report 14782636 (Version 3)
Quarter: 2018Q2

REPORT INFORMATION
  Report Type: Spontaneous
  Country: US (occurrence: US)
  Receive Date: 20180420
  Receipt Date: 20180606
  Transmission Date: 20180711
  Serious: No
  Sender: FDA-Public Use
  Company Number: US-TEVA-2018-US-882246

PATIENT
  Sex: Female

DRUGS (3)
  1. ESTRADIOL. [Suspect]
     Active Substance: ESTRADIOL
     Indication: VULVOVAGINAL DRYNESS
     Route: 067
     Dates: start: 20180327, end: 20180331
  2. ESTRADIOL. [Suspect]
     Active Substance: ESTRADIOL
     Indication: VULVOVAGINAL PRURITUS
  3. ESTRADIOL. [Suspect]
     Active Substance: ESTRADIOL
     Indication: VULVOVAGINAL PAIN

REACTIONS (1)
  - Drug ineffective [Unknown]
